FAERS Safety Report 17033206 (Version 2)
Quarter: 2020Q1

REPORT INFORMATION
  Report Type: Spontaneous
  Country: US (occurrence: US)
  Receive Date: 20191114
  Receipt Date: 20200106
  Transmission Date: 20200409
  Serious: No
  Sender: FDA-Public Use
  Company Number: US-SA-2019SA309763

PATIENT
  Age: 11 Year
  Sex: Female

DRUGS (1)
  1. DUPIXENT [Suspect]
     Active Substance: DUPILUMAB
     Indication: DERMATITIS ATOPIC
     Dosage: 200 MG, QOW
     Dates: start: 20190103

REACTIONS (3)
  - Intentional device use issue [Unknown]
  - Incorrect dose administered by device [Unknown]
  - Product use issue [Unknown]

NARRATIVE: CASE EVENT DATE: 20191027
